FAERS Safety Report 4691148-5 (Version None)
Quarter: 2005Q2

REPORT INFORMATION
  Report Type: 
  Country: None (occurrence: None)
  Receive Date: 20050610
  Receipt Date: 20050601
  Transmission Date: 20051028
  Serious: Yes (Hospitalization)
  Sender: FDA-Public Use
  Company Number: 2005-06-0253

PATIENT
  Sex: Female

DRUGS (4)
  1. CELESTAMINE TAB [Suspect]
     Indication: DRUG ERUPTION
     Dosage: ORAL
     Route: 048
  2. DICLOFENAC SODIUM [Suspect]
     Dosage: ORAL
     Route: 048
  3. PRAVASTATIN SODIUM [Suspect]
     Dosage: ORAL
     Route: 048
  4. AMLODIPINE BESILATE TABLETS [Concomitant]

REACTIONS (4)
  - BLISTER [None]
  - DRUG ERUPTION [None]
  - ERYTHEMA [None]
  - MALAISE [None]
